FAERS Safety Report 5247281-2 (Version None)
Quarter: 2007Q1

REPORT INFORMATION
  Report Type: 
  Country: None (occurrence: None)
  Receive Date: 20070227
  Receipt Date: 20070213
  Transmission Date: 20070707
  Serious: Yes (Hospitalization)
  Sender: FDA-Public Use
  Company Number: PHBS2007TR02904

PATIENT
  Age: 12 Year
  Sex: Female

DRUGS (2)
  1. CARBAMAZEPINE [Suspect]
     Indication: EPILEPSY
     Dosage: 14 TABLETS, ONCE/SINGLE
     Route: 048
  2. PHENYTOIN [Concomitant]
     Indication: EPILEPSY

REACTIONS (7)
  - ANTICONVULSANT DRUG LEVEL INCREASED [None]
  - COORDINATION ABNORMAL [None]
  - GRAND MAL CONVULSION [None]
  - LOSS OF CONSCIOUSNESS [None]
  - MIOSIS [None]
  - OVERDOSE [None]
  - SOMNOLENCE [None]
